FAERS Safety Report 15003895 (Version 1)
Quarter: 2018Q2

REPORT INFORMATION
  Report Type: Spontaneous
  Country: None (occurrence: FR)
  Receive Date: 20180613
  Receipt Date: 20180613
  Transmission Date: 20180711
  Serious: Yes (Other)
  Sender: FDA-Public Use
  Company Number: FR-MERCK KGAA-2049323

PATIENT
  Sex: Female

DRUGS (1)
  1. NOVOTHYROX [Suspect]
     Active Substance: LEVOTHYROXINE SODIUM
     Indication: PRODUCT USED FOR UNKNOWN INDICATION

REACTIONS (9)
  - Alopecia [None]
  - Muscle spasms [None]
  - Joint stiffness [None]
  - Vomiting [None]
  - Unevaluable event [None]
  - Fatigue [None]
  - Arrhythmia [None]
  - Gastrointestinal disorder [None]
  - Joint swelling [None]
